FAERS Safety Report 8768135 (Version 2)
Quarter: 2014Q3

REPORT INFORMATION
  Report Type: Spontaneous
  Country: US (occurrence: US)
  Receive Date: 20120905
  Receipt Date: 20140806
  Transmission Date: 20150326
  Serious: Yes (Hospitalization)
  Sender: FDA-Public Use
  Company Number: US-GLAXOSMITHKLINE-A0867473A

PATIENT
  Sex: Male

DRUGS (2)
  1. ROSIGLITAZONE MALEATE. [Suspect]
     Active Substance: ROSIGLITAZONE MALEATE
     Route: 048
     Dates: start: 200603, end: 200706
  2. AVANDIA [Suspect]
     Active Substance: ROSIGLITAZONE MALEATE
     Indication: DIABETES MELLITUS
     Dosage: 8MG TWICE PER DAY
     Route: 048
     Dates: start: 20010314, end: 20070629

REACTIONS (3)
  - Arrhythmia [Unknown]
  - Arteriosclerosis coronary artery [Unknown]
  - Myocardial infarction [Not Recovered/Not Resolved]
